FAERS Safety Report 16064947 (Version 1)
Quarter: 2019Q1

REPORT INFORMATION
  Report Type: Report from Study
  Country: None (occurrence: GB)
  Receive Date: 20190312
  Receipt Date: 20190312
  Transmission Date: 20190418
  Serious: Yes (Hospitalization)
  Sender: FDA-Public Use
  Company Number: GB-ABBVIE-19K-167-2699908-00

PATIENT
  Age: 56 Year
  Sex: Male

DRUGS (3)
  1. HUMIRA [Suspect]
     Active Substance: ADALIMUMAB
     Indication: CROHN^S DISEASE
     Route: 058
     Dates: end: 2019
  2. HUMIRA [Suspect]
     Active Substance: ADALIMUMAB
     Route: 058
     Dates: start: 2019
  3. AMGEVITA [Concomitant]
     Active Substance: ADALIMUMAB
     Indication: PRODUCT USED FOR UNKNOWN INDICATION

REACTIONS (2)
  - Malaise [Not Recovered/Not Resolved]
  - Feeling abnormal [Not Recovered/Not Resolved]

NARRATIVE: CASE EVENT DATE: 201902
